FAERS Safety Report 11525229 (Version 2)
Quarter: 2015Q4

REPORT INFORMATION
  Report Type: Spontaneous
  Country: FR (occurrence: FR)
  Receive Date: 20150918
  Receipt Date: 20151016
  Transmission Date: 20160304
  Serious: Yes (Hospitalization, Other)
  Sender: FDA-Public Use
  Company Number: FR-ASTRAZENECA-2015SE82971

PATIENT
  Age: 26038 Day
  Sex: Female

DRUGS (18)
  1. APRANAX [Suspect]
     Active Substance: NAPROXEN
     Route: 048
     Dates: start: 20150627, end: 20150629
  2. THIOCOLCHICOSIDE [Suspect]
     Active Substance: THIOCOLCHICOSIDE
     Route: 048
     Dates: end: 20150701
  3. LYRICA [Suspect]
     Active Substance: PREGABALIN
     Route: 048
     Dates: end: 20150701
  4. TAHOR [Concomitant]
     Active Substance: ATORVASTATIN CALCIUM
     Route: 048
  5. NABUCOX [Suspect]
     Active Substance: NABUMETONE
     Indication: NECK PAIN
     Route: 048
     Dates: start: 20150625, end: 20150626
  6. INEXIUM [Suspect]
     Active Substance: ESOMEPRAZOLE
     Route: 048
     Dates: start: 20150627, end: 20150629
  7. CODOLIPRANE [Suspect]
     Active Substance: ACETAMINOPHEN\CODEINE PHOSPHATE
     Indication: NECK PAIN
     Route: 048
     Dates: start: 20150625, end: 20150626
  8. LYRICA [Suspect]
     Active Substance: PREGABALIN
     Route: 048
     Dates: start: 20150701
  9. TENSTATEN [Suspect]
     Active Substance: CICLETANINE HYDROCHLORIDE
     Route: 048
  10. GINKGO EXTRACT\HEPTAMINOL\TROXERUTIN [Concomitant]
     Active Substance: GINKGO\HEPTAMINOL\TROXERUTIN
     Route: 048
  11. STAPHYSAGRIA COMPLEXE NUMERO 92 [Concomitant]
     Route: 048
  12. LANSOPRAZOLE. [Suspect]
     Active Substance: LANSOPRAZOLE
     Route: 048
     Dates: start: 20150625, end: 20150626
  13. TOPALGIC [Suspect]
     Active Substance: TRAMADOL
     Route: 048
     Dates: start: 20150627, end: 20150629
  14. DAFALGAN [Suspect]
     Active Substance: ACETAMINOPHEN
     Route: 048
     Dates: start: 20150627, end: 20150628
  15. NIFLUGEL [Suspect]
     Active Substance: NIFLUMIC ACID
     Indication: NECK PAIN
     Route: 062
     Dates: start: 20150625, end: 20150626
  16. ORAMORPH [Suspect]
     Active Substance: MORPHINE SULFATE
     Dosage: 10 MG / 5 ML DAILY
     Route: 048
     Dates: end: 20150701
  17. LOXEN [Suspect]
     Active Substance: NICARDIPINE HYDROCHLORIDE
     Route: 048
     Dates: start: 20150629, end: 20150701
  18. DAFALGAN [Suspect]
     Active Substance: ACETAMINOPHEN
     Dosage: 1 DF THREE TIMES A DAY (DOLIPRANE)
     Route: 048
     Dates: start: 20150629, end: 20150701

REACTIONS (13)
  - Vomiting [Recovered/Resolved]
  - Blood creatinine decreased [Unknown]
  - Migraine [Unknown]
  - Inappropriate antidiuretic hormone secretion [Unknown]
  - Urine sodium decreased [Unknown]
  - Creatinine urine decreased [Unknown]
  - Blood chloride decreased [Unknown]
  - Blood uric acid decreased [Unknown]
  - Hyponatraemia [Recovered/Resolved]
  - Urine potassium decreased [Unknown]
  - Blood albumin decreased [Unknown]
  - Blood osmolarity decreased [Unknown]
  - Urine chloride decreased [Unknown]

NARRATIVE: CASE EVENT DATE: 20150701
